FAERS Safety Report 8510344-X (Version None)
Quarter: 2012Q3

REPORT INFORMATION
  Report Type: 
  Country: None (occurrence: None)
  Receive Date: 20120713
  Receipt Date: 20120707
  Transmission Date: 20120928
  Serious: Yes (Hospitalization)
  Sender: FDA-Public Use
  Company Number: US-PFIZER INC-2012157089

PATIENT
  Sex: Female
  Weight: 79.365 kg

DRUGS (19)
  1. VENLAFAXINE HCL [Suspect]
     Dosage: 187.5 MG, 1X/DAY
     Dates: start: 20110904, end: 20110907
  2. ACETAMINOPHEN [Concomitant]
     Dosage: 650 MG, EVERY 6 HOURS AS NEEDED
     Dates: start: 20100101
  3. METOPROLOL TARTRATE [Concomitant]
     Dosage: 100 MG IN AM, 50 MG IN PM
     Dates: start: 20100101
  4. BLINDED THERAPY [Suspect]
     Dosage: 5 MG, 1X/DAY
     Dates: start: 20111206, end: 20111212
  5. LISINOPRIL [Concomitant]
     Dosage: 20 MG, 2X/DAY
     Dates: start: 19960101
  6. WARFARIN [Concomitant]
     Dosage: 2 MG ONCE DAILY FOR TWO DAYS, THEN 1 MG ONCE DAILY FOR ONE DAY AT BEDTIME
     Dates: start: 20090101
  7. VENLAFAXINE HCL [Suspect]
     Dosage: 225 MG, 1X/DAY
     Dates: start: 20110908, end: 20110928
  8. VENLAFAXINE HCL [Suspect]
     Dosage: 262.5 MG, 1X/DAY
     Dates: start: 20110929, end: 20111002
  9. VENLAFAXINE HCL [Suspect]
     Dosage: 300 MG, 1X/DAY
     Dates: start: 20111003
  10. BLINDED THERAPY [Suspect]
     Dosage: 2 MG, 1X/DAY
     Dates: start: 20111129, end: 20111205
  11. BLINDED THERAPY [Suspect]
     Dosage: 7 MG, 1X/DAY
     Dates: start: 20111213, end: 20111219
  12. CALCARB-VITD [Concomitant]
     Dosage: 600 MG / 200 IU, 2X/DAY
     Dates: start: 20000101
  13. ALPRAZOLAM [Concomitant]
     Dosage: 0.5 MG, AS NEEDED
     Dates: start: 20090101
  14. VENLAFAXINE HCL [Suspect]
     Dosage: 75 MG, 2X/DAY
     Route: 048
     Dates: start: 20080615, end: 20110903
  15. BLINDED THERAPY [Suspect]
     Dosage: 10 MG, 1X/DAY
     Dates: start: 20111220
  16. CRESTOR [Concomitant]
     Dosage: 10 MG, 1X/DAY AT BEDTIME
  17. FUROSEMIDE [Concomitant]
     Dosage: 40 MG, 1X/DAY
     Dates: start: 19960101
  18. DILTIAZEM [Concomitant]
     Dosage: 180 MG, 2X/DAY
     Dates: start: 20100101
  19. DOFETILIDE [Concomitant]
     Dosage: 500 UG, 2X/DAY

REACTIONS (1)
  - CHEST PAIN [None]
